FAERS Safety Report 12986314 (Version 1)
Quarter: 2016Q4

REPORT INFORMATION
  Report Type: Spontaneous
  Country: ID (occurrence: ID)
  Receive Date: 20161130
  Receipt Date: 20161130
  Transmission Date: 20170207
  Serious: Yes (Hospitalization, Other)
  Sender: FDA-Public Use
  Company Number: PHHY2016ID164089

PATIENT
  Age: 40 Year
  Sex: Male

DRUGS (3)
  1. NEO ENTROSTOP [Suspect]
     Active Substance: ATTAPULGITE\PECTIN
     Indication: DIARRHOEA
     Dosage: UNK
     Route: 048
  2. CATAFLAM [Suspect]
     Active Substance: DICLOFENAC POTASSIUM
     Indication: ANALGESIC THERAPY
     Dosage: UNK
     Route: 048
  3. PANADOL [Suspect]
     Active Substance: ACETAMINOPHEN
     Indication: PYREXIA
     Dosage: UNK
     Route: 048

REACTIONS (2)
  - Suicide attempt [Unknown]
  - Loss of consciousness [Unknown]

NARRATIVE: CASE EVENT DATE: 20161121
